FAERS Safety Report 13562210 (Version 1)
Quarter: 2017Q2

REPORT INFORMATION
  Report Type: Spontaneous
  Country: US (occurrence: US)
  Receive Date: 20170519
  Receipt Date: 20170519
  Transmission Date: 20170830
  Serious: No
  Sender: FDA-Public Use
  Company Number: US-ASTRAZENECA-2017SE50632

PATIENT
  Age: 160 Month
  Sex: Male
  Weight: 45.7 kg

DRUGS (1)
  1. ARIMIDEX [Suspect]
     Active Substance: ANASTROZOLE
     Route: 048

REACTIONS (5)
  - Insulin-like growth factor increased [Unknown]
  - Pubertal failure [Unknown]
  - Blood glucose increased [Unknown]
  - Precocious puberty [None]
  - Weight increased [Unknown]

NARRATIVE: CASE EVENT DATE: 201703
